FAERS Safety Report 8313006-7 (Version None)
Quarter: 2012Q2

REPORT INFORMATION
  Report Type: 
  Country: None (occurrence: None)
  Receive Date: 20120426
  Receipt Date: 20120123
  Transmission Date: 20120825
  Serious: No
  Sender: FDA-Public Use
  Company Number: US-MYLANLABS-2011S1019646

PATIENT
  Age: 55 Year
  Sex: Male
  Weight: 86.18 kg

DRUGS (4)
  1. SIMVASTATIN [Concomitant]
     Indication: BLOOD CHOLESTEROL INCREASED
  2. TAMSULOSIN HCL [Suspect]
     Indication: POLLAKIURIA
     Route: 048
     Dates: start: 20110903, end: 20110923
  3. TAMSULOSIN HCL [Suspect]
     Indication: BENIGN PROSTATIC HYPERPLASIA
     Route: 048
     Dates: start: 20110903, end: 20110923
  4. LISINOPRIL [Concomitant]
     Indication: BLOOD PRESSURE INCREASED

REACTIONS (3)
  - NOCTURIA [None]
  - POLLAKIURIA [None]
  - DRUG INEFFECTIVE [None]
